FAERS Safety Report 5809435-3 (Version None)
Quarter: 2008Q3

REPORT INFORMATION
  Report Type: 
  Country: None (occurrence: None)
  Receive Date: 20080709
  Receipt Date: 20080627
  Transmission Date: 20090109
  Serious: Yes (Hospitalization)
  Sender: FDA-Public Use
  Company Number: 001640

PATIENT
  Age: 29 Year
  Sex: Male

DRUGS (6)
  1. BUSULFEX [Suspect]
     Indication: STEM CELL TRANSPLANT
     Dosage: 33.2 ML, INTRAVENOUS
     Route: 042
     Dates: start: 20070818, end: 20070819
  2. CYTARABINE [Concomitant]
  3. FLUDARABINE PHOSPHATE [Concomitant]
  4. PHENYTOIN [Concomitant]
  5. NEUPOGEN [Concomitant]
  6. CYCLOSPORINE [Concomitant]

REACTIONS (2)
  - BONE MARROW TRANSPLANT REJECTION [None]
  - ENTEROBACTER SEPSIS [None]
